FAERS Safety Report 5670596-0 (Version None)
Quarter: 2008Q1

REPORT INFORMATION
  Report Type: 
  Country: None (occurrence: None)
  Receive Date: 20080318
  Receipt Date: 20080307
  Transmission Date: 20080703
  Serious: Yes (Hospitalization)
  Sender: FDA-Public Use
  Company Number: FR-JNJFOC-20080301789

PATIENT
  Age: 82 Year
  Sex: Male

DRUGS (3)
  1. OFLOCET [Suspect]
     Indication: SEPSIS SYNDROME
     Route: 042
     Dates: start: 20071218, end: 20071230
  2. GENTALLINE [Suspect]
     Indication: SEPSIS SYNDROME
     Route: 042
  3. ORBENINE [Suspect]
     Indication: SEPSIS SYNDROME
     Route: 042

REACTIONS (2)
  - PLATELET DISORDER [None]
  - THROMBOCYTOPENIA [None]
